FAERS Safety Report 5222406-3 (Version None)
Quarter: 2007Q1

REPORT INFORMATION
  Report Type: 
  Country: None (occurrence: None)
  Receive Date: 20070129
  Receipt Date: 20060613
  Transmission Date: 20070707
  Serious: No
  Sender: FDA-Public Use
  Company Number: US-BRISTOL-MYERS SQUIBB COMPANY-13433610

PATIENT
  Age: 40 Year
  Sex: Male

DRUGS (6)
  1. TRAZODONE HCL [Suspect]
     Indication: BIPOLAR I DISORDER
  2. ZOLOFT [Concomitant]
  3. BUSPAR [Concomitant]
  4. LITHIUM CARBONATE [Concomitant]
  5. ABILIFY [Concomitant]
  6. WELLBUTRIN [Concomitant]

REACTIONS (1)
  - DRUG INEFFECTIVE [None]
